FAERS Safety Report 4504960-X (Version None)
Quarter: 2004Q4

REPORT INFORMATION
  Report Type: 
  Country: None (occurrence: None)
  Receive Date: 20041020
  Receipt Date: 20040913
  Transmission Date: 20050328
  Serious: No
  Sender: FDA-Public Use
  Company Number: 2004-09-0714

PATIENT

DRUGS (1)
  1. CLARINEX [Suspect]
     Dosage: 1 QD ORAL
     Route: 048

REACTIONS (7)
  - ANXIETY [None]
  - DRY MOUTH [None]
  - DYSPHAGIA [None]
  - FATIGUE [None]
  - INSOMNIA [None]
  - LOCAL SWELLING [None]
  - THROAT TIGHTNESS [None]
